FAERS Safety Report 20404871 (Version 20)
Quarter: 2022Q3

REPORT INFORMATION
  Report Type: Report from Study
  Country: NO (occurrence: None)
  Receive Date: 20220131
  Receipt Date: 20220705
  Transmission Date: 20221027
  Serious: Yes (Hospitalization)
  Sender: FDA-Public Use
  Company Number: NO-Eisai Medical Research-EC-2022-107629

PATIENT
  Age: 64 Year
  Sex: Male
  Weight: 96.2 kg

DRUGS (13)
  1. LENVATINIB [Suspect]
     Active Substance: LENVATINIB
     Indication: Clear cell renal cell carcinoma
     Route: 048
     Dates: start: 20210915, end: 20220119
  2. LENVATINIB [Suspect]
     Active Substance: LENVATINIB
     Route: 048
     Dates: start: 20220323
  3. QUAVONLIMAB [Suspect]
     Active Substance: QUAVONLIMAB
     Indication: Clear cell renal cell carcinoma
     Dosage: QUANVOLIMAB (MK-1308) 25 MG (+) PEMBROLIZUMAB 400 MG, UP TO 18 CYCLES OR PD OR DISCONTINUATION
     Route: 041
     Dates: start: 20210915, end: 20211027
  4. QUAVONLIMAB [Suspect]
     Active Substance: QUAVONLIMAB
     Dosage: QUANVOLIMAB (MK-1308) 25 MG (+) PEMBROLIZUMAB 400 MG, UP TO 18 CYCLES OR PD OR DISCONTINUATION
     Route: 041
     Dates: start: 20211207, end: 20211207
  5. QUAVONLIMAB [Suspect]
     Active Substance: QUAVONLIMAB
     Dosage: QUANVOLIMAB (MK-1308) 25 MG (+) PEMBROLIZUMAB 400 MG, UP TO 18 CYCLES OR PD OR DISCONTINUATION
     Route: 041
     Dates: start: 20220211, end: 20220211
  6. HYDROCHLOROTHIAZIDE\LOSARTAN POTASSIUM [Concomitant]
     Active Substance: HYDROCHLOROTHIAZIDE\LOSARTAN POTASSIUM
     Dates: start: 20150902
  7. ASPIRIN [Concomitant]
     Active Substance: ASPIRIN
     Dates: start: 20150902
  8. ATORVASTATIN [Concomitant]
     Active Substance: ATORVASTATIN
     Dates: start: 20150902
  9. FELODIPINE [Concomitant]
     Active Substance: FELODIPINE
     Dates: start: 202108
  10. LOPERAMIDE [Concomitant]
     Active Substance: LOPERAMIDE
     Dates: start: 20211229, end: 20220127
  11. PEMBROLIZUMAB [Suspect]
     Active Substance: PEMBROLIZUMAB
  12. PEMBROLIZUMAB [Suspect]
     Active Substance: PEMBROLIZUMAB
  13. PEMBROLIZUMAB [Suspect]
     Active Substance: PEMBROLIZUMAB

REACTIONS (2)
  - Pancreatitis [Recovered/Resolved]
  - Polyarthritis [Recovered/Resolved]

NARRATIVE: CASE EVENT DATE: 20220119
